FAERS Safety Report 24913463 (Version 4)
Quarter: 2025Q4

REPORT INFORMATION
  Report Type: Spontaneous
  Country: JP (occurrence: JP)
  Receive Date: 20250201
  Receipt Date: 20251127
  Transmission Date: 20260118
  Serious: Yes (Life-Threatening, Hospitalization, Other)
  Sender: AMGEN
  Company Number: JP-KISSEI-TV20250089_P_1

PATIENT
  Age: 80 Year
  Sex: Female

DRUGS (2)
  1. TAVNEOS [Suspect]
     Active Substance: AVACOPAN
     Indication: Anti-neutrophil cytoplasmic antibody positive vasculitis
     Dosage: 60 MILLIGRAM, QD
     Route: 048
     Dates: start: 202410
  2. PREDNISOLONE [Concomitant]
     Active Substance: PREDNISOLONE
     Dosage: 5 MG, QD
     Route: 065

REACTIONS (5)
  - Vanishing bile duct syndrome [Recovered/Resolved]
  - Liver injury [Recovered/Resolved]
  - Jaundice [Recovered/Resolved]
  - Acute hepatic failure [Recovered/Resolved]
  - Suspected drug-induced liver injury [Recovered/Resolved]
